FAERS Safety Report 16530204 (Version 12)
Quarter: 2020Q3

REPORT INFORMATION
  Report Type: Spontaneous
  Country: JP (occurrence: JP)
  Receive Date: 20190704
  Receipt Date: 20200720
  Transmission Date: 20201102
  Serious: Yes (Hospitalization)
  Sender: FDA-Public Use
  Company Number: JP-AMGEN-JPNSP2019104699

PATIENT
  Age: 50 Year
  Sex: Female
  Weight: 58.5 kg

DRUGS (17)
  1. ROCALTROL [Concomitant]
     Active Substance: CALCITRIOL
     Dosage: 0.5 MICROGRAM, 3 TIMES/WK (0.5 UG, Q56H)
     Route: 010
     Dates: start: 20190529
  2. NESP [Concomitant]
     Active Substance: DARBEPOETIN ALFA
     Dosage: 40 MICROGRAM QWK
     Route: 065
     Dates: start: 20190830
  3. ROCALTROL [Concomitant]
     Active Substance: CALCITRIOL
     Indication: HYPERPARATHYROIDISM SECONDARY
     Dosage: 0.5 MICROGRAM, 2 TIMES/WK (0.5 UG, Q84H)
     Route: 010
     Dates: start: 20180307
  4. ROCALTROL [Concomitant]
     Active Substance: CALCITRIOL
     Dosage: 0.5 UG, Q84H
     Route: 010
     Dates: start: 20180307, end: 20190322
  5. CALTAN [Concomitant]
     Active Substance: CALCIUM CARBONATE
     Dosage: 3000 MG, EVERYDAY
     Route: 048
  6. ROCALTROL [Concomitant]
     Active Substance: CALCITRIOL
     Dosage: 0.5 UG, Q84H
     Route: 010
     Dates: start: 20190517, end: 20190531
  7. ROCALTROL [Concomitant]
     Active Substance: CALCITRIOL
     Dosage: 0.5 UG, Q56H
     Route: 010
     Dates: start: 20190603
  8. FESIN [SACCHARATED IRON OXIDE] [Concomitant]
     Active Substance: IRON SUCROSE
     Dosage: 40 MG, QW
     Route: 042
     Dates: start: 20190705
  9. ROCALTROL [Concomitant]
     Active Substance: CALCITRIOL
     Dosage: 0.5 UG, Q56H
     Route: 010
     Dates: start: 20190329, end: 20190513
  10. ROCALTROL [Concomitant]
     Active Substance: CALCITRIOL
     Dosage: 0.5 UG, Q84H
     Route: 010
     Dates: start: 20190517, end: 20190531
  11. NESP [Concomitant]
     Active Substance: DARBEPOETIN ALFA
     Dosage: 40 UG, QW
     Route: 065
     Dates: start: 20190426, end: 20190823
  12. PARSABIV [Suspect]
     Active Substance: ETELCALCETIDE HYDROCHLORIDE
     Indication: HYPERPARATHYROIDISM SECONDARY
     Dosage: 2.5 MG Q56H
     Route: 010
     Dates: start: 20190515, end: 20190515
  13. ROCALTROL [Concomitant]
     Active Substance: CALCITRIOL
     Dosage: 0.5 UG, Q56H
     Route: 010
     Dates: start: 20190603
  14. ROCALTROL [Concomitant]
     Active Substance: CALCITRIOL
     Dosage: 0.5 UG, Q84H
     Route: 010
     Dates: start: 20180307, end: 20190322
  15. NESP [Concomitant]
     Active Substance: DARBEPOETIN ALFA
     Dosage: 30 UG, QW
     Route: 065
     Dates: end: 20190419
  16. ROCALTROL [Concomitant]
     Active Substance: CALCITRIOL
     Dosage: 1 UG, QW
     Route: 010
     Dates: end: 20190322
  17. ROCALTROL [Concomitant]
     Active Substance: CALCITRIOL
     Dosage: 0.5 UG, Q56H
     Route: 010
     Dates: start: 20190329, end: 20190513

REACTIONS (11)
  - Choking sensation [Recovered/Resolved]
  - Shunt stenosis [Recovered/Resolved]
  - Shunt stenosis [Recovered/Resolved]
  - Abdominal discomfort [Recovered/Resolved]
  - Shunt stenosis [Recovered/Resolved]
  - Shunt stenosis [Recovered/Resolved]
  - Shunt stenosis [Recovered/Resolved]
  - Shunt stenosis [Recovered/Resolved]
  - Shunt stenosis [Recovered/Resolved]
  - Shunt stenosis [Recovered/Resolved]
  - Drug hypersensitivity [Recovered/Resolved]

NARRATIVE: CASE EVENT DATE: 20190515
